FAERS Safety Report 21280006 (Version 1)
Quarter: 2022Q3

REPORT INFORMATION
  Report Type: Spontaneous
  Country: IN (occurrence: IN)
  Receive Date: 20220901
  Receipt Date: 20220901
  Transmission Date: 20221027
  Serious: Yes (Other)
  Sender: FDA-Public Use
  Company Number: IN-PFIZER INC-202200106804

PATIENT
  Age: 58 Year
  Sex: Female

DRUGS (1)
  1. PALBOCICLIB [Suspect]
     Active Substance: PALBOCICLIB
     Dosage: 125MG, 1X/DAY
     Route: 048
     Dates: start: 20211025, end: 20220722

REACTIONS (3)
  - Pulmonary oedema [Unknown]
  - COVID-19 [Unknown]
  - Neoplasm progression [Unknown]
